FAERS Safety Report 8822706 (Version 2)
Quarter: 2015Q2

REPORT INFORMATION
  Report Type: Report from Study
  Country: US (occurrence: US)
  Receive Date: 20121003
  Receipt Date: 20150421
  Transmission Date: 20150821
  Serious: Yes (Death, Other)
  Sender: FDA-Public Use
  Company Number: US-ROCHE-1104572

PATIENT
  Sex: Male
  Weight: 89.89 kg

DRUGS (17)
  1. NEUPOGEN [Concomitant]
     Active Substance: FILGRASTIM
     Route: 058
  2. SUPRAX (UNITED STATES) [Concomitant]
  3. FLUDARA [Concomitant]
     Active Substance: FLUDARABINE PHOSPHATE
     Route: 042
  4. ANZEMET [Concomitant]
     Active Substance: DOLASETRON MESYLATE
     Route: 042
  5. CALAMINE [Concomitant]
     Active Substance: CALAMINE\FERRIC OXIDE RED\ZINC OXIDE
     Route: 065
  6. DECADRON [Concomitant]
     Active Substance: DEXAMETHASONE
     Route: 042
  7. BENADRYL [Concomitant]
     Active Substance: DIPHENHYDRAMINE HYDROCHLORIDE
     Route: 050
  8. RITUXAN [Suspect]
     Active Substance: RITUXIMAB
     Indication: NON-HODGKIN^S LYMPHOMA
  9. TYLENOL [Concomitant]
     Active Substance: ACETAMINOPHEN
     Route: 048
  10. BENADRYL [Concomitant]
     Active Substance: DIPHENHYDRAMINE HYDROCHLORIDE
     Route: 050
  11. MARINOL (UNITED STATES) [Concomitant]
  12. RITUXAN [Suspect]
     Active Substance: RITUXIMAB
     Indication: MALIGNANT LYMPHOID NEOPLASM
     Route: 042
     Dates: start: 20020226
  13. ARANESP [Concomitant]
     Active Substance: DARBEPOETIN ALFA
     Route: 058
  14. ALBUTEROL. [Concomitant]
     Active Substance: ALBUTEROL
     Route: 065
  15. NEXIUM [Concomitant]
     Active Substance: ESOMEPRAZOLE MAGNESIUM
  16. RITUXAN [Suspect]
     Active Substance: RITUXIMAB
     Indication: MALIGNANT HISTIOCYTOSIS
  17. LASIX [Concomitant]
     Active Substance: FUROSEMIDE

REACTIONS (30)
  - Weight decreased [Unknown]
  - Oedema [Unknown]
  - Bladder outlet obstruction [Unknown]
  - Erythema [Unknown]
  - Constipation [Unknown]
  - Fall [Unknown]
  - Disease progression [Unknown]
  - Prostatomegaly [Unknown]
  - Bronchiectasis [Unknown]
  - Arthralgia [Unknown]
  - Malaise [Unknown]
  - Feeding disorder [Unknown]
  - Cardiomegaly [Unknown]
  - Neutropenia [Unknown]
  - Splenic calcification [Unknown]
  - Emphysema [Unknown]
  - Fatigue [Unknown]
  - Diverticulum intestinal [Unknown]
  - Dyspnoea exertional [Recovering/Resolving]
  - Death [Fatal]
  - Decreased appetite [Recovered/Resolved]
  - Nausea [Unknown]
  - Cytopenia [Unknown]
  - Pruritus [Unknown]
  - Chills [Unknown]
  - Alveolitis allergic [Unknown]
  - Anaemia [Unknown]
  - Hypoventilation [Unknown]
  - Computerised tomogram thorax abnormal [Unknown]
  - Upper limb fracture [Unknown]
